FAERS Safety Report 8859390 (Version 1)
Quarter: 2012Q4

REPORT INFORMATION
  Report Type: Spontaneous
  Country: US (occurrence: None)
  Receive Date: 20121022
  Receipt Date: 20121022
  Transmission Date: 20130627
  Serious: Yes (Death, Congenital Anomaly)
  Sender: FDA-Public Use
  Company Number: 7167162

PATIENT
  Age: 1 Day
  Sex: Female

DRUGS (9)
  1. LEVOTHYROX [Suspect]
     Indication: DRUG EXPOSURE VIA MOTHER
  2. DEPAKINE [Suspect]
     Indication: DRUG EXPOSURE VIA MOTHER
     Route: 064
  3. DEPAKINE [Suspect]
     Indication: DRUG EXPOSURE VIA MOTHER
     Route: 064
  4. URBANYL [Suspect]
     Indication: DRUG EXPOSURE VIA MOTHER
  5. URBANYL [Suspect]
     Indication: DRUG EXPOSURE VIA MOTHER
  6. URBANYL [Suspect]
  7. SPECIAFOLDINE [Suspect]
     Indication: DRUG EXPOSURE VIA MOTHER
  8. SPECIAFOLDINE [Suspect]
     Indication: DRUG EXPOSURE VIA MOTHER
  9. SPECIAFOLDINE [Suspect]

REACTIONS (4)
  - Foetal exposure during pregnancy [None]
  - Spina bifida [None]
  - Abortion induced [None]
  - Arnold-Chiari malformation [None]
